FAERS Safety Report 9043006 (Version 1)
Quarter: 2013Q1

REPORT INFORMATION
  Report Type: Report from Study
  Country: US (occurrence: US)
  Receive Date: 20130129
  Receipt Date: 20130129
  Transmission Date: 20140127
  Serious: No
  Sender: FDA-Public Use
  Company Number: US-ABBOTT-12P-163-0910609-00

PATIENT
  Age: 64 Year
  Sex: Female

DRUGS (5)
  1. HUMIRA 40 MG/0.8 ML PEN [Suspect]
     Indication: RHEUMATOID ARTHRITIS
     Dates: start: 20120301
  2. NISOLDIPINE [Concomitant]
     Indication: RAYNAUD^S PHENOMENON
  3. PLAQUENIL [Concomitant]
     Indication: ARTHRITIS
  4. LEFLUNOMIDE [Concomitant]
     Indication: ARTHRITIS
  5. NEURONTIN [Concomitant]
     Indication: RAYNAUD^S PHENOMENON

REACTIONS (2)
  - Injection site bruising [Not Recovered/Not Resolved]
  - Arthritis [Unknown]
